FAERS Safety Report 5717488-6 (Version None)
Quarter: 2008Q2

REPORT INFORMATION
  Report Type: 
  Country: None (occurrence: None)
  Receive Date: 20080421
  Receipt Date: 20080116
  Transmission Date: 20081010
  Serious: Yes (Hospitalization)
  Sender: FDA-Public Use
  Company Number: WAES 0801USA03314

PATIENT
  Age: 20 Year
  Sex: Female

DRUGS (5)
  1. SINGULAIR [Suspect]
     Dosage: 10 MG/DAILY/PO
     Route: 048
  2. CULTURELLE UNK [Suspect]
  3. BENADRYL [Suspect]
  4. PREDNISONE [Suspect]
  5. PEPTO-BISMOL UNK [Suspect]

REACTIONS (1)
  - ADVERSE DRUG REACTION [None]
